FAERS Safety Report 9069530 (Version 1)
Quarter: 2013Q1

REPORT INFORMATION
  Report Type: Spontaneous
  Country: US (occurrence: US)
  Receive Date: 20130131
  Receipt Date: 20130131
  Transmission Date: 20140127
  Serious: Yes (Death)
  Sender: FDA-Public Use
  Company Number: PHHY2013US006752

PATIENT
  Age: 60 Year
  Sex: Female

DRUGS (7)
  1. METOPROLOL [Suspect]
  2. METFORMIN [Suspect]
  3. POTASSIUM CHLORIDE [Suspect]
  4. AMLODIPINE [Suspect]
  5. PARACETAMOL SANDOZ [Suspect]
  6. HYDROCODONE [Suspect]
  7. SALICYLATES [Suspect]

REACTIONS (1)
  - Completed suicide [Fatal]
